FAERS Safety Report 9749051 (Version 1)
Quarter: 2013Q4

REPORT INFORMATION
  Report Type: Spontaneous
  Country: US (occurrence: US)
  Receive Date: 20131212
  Receipt Date: 20131212
  Transmission Date: 20140711
  Serious: No
  Sender: FDA-Public Use
  Company Number: US-INCYTE CORPORATION-2013IN002109

PATIENT
  Age: 64 Year
  Sex: Female

DRUGS (6)
  1. JAKAFI [Suspect]
     Indication: POLYCYTHAEMIA VERA
     Dosage: 20 MG DAILY ALTERNATING WITH 20 MG BID QOD
     Route: 048
  2. CAPTOPRIL [Concomitant]
  3. LEVOTHYROXINE [Concomitant]
  4. HYDROCHLOROTHIAZIDE [Concomitant]
  5. SIMVASTATIN [Concomitant]
  6. BABY ASPIRIN [Concomitant]

REACTIONS (1)
  - Epistaxis [Unknown]
